FAERS Safety Report 9941351 (Version 2)
Quarter: 2014Q1

REPORT INFORMATION
  Report Type: Report from Study
  Country: US (occurrence: US)
  Receive Date: 20140303
  Receipt Date: 20140303
  Transmission Date: 20141002
  Serious: No
  Sender: FDA-Public Use
  Company Number: US-ABBVIE-12P-163-0974664-00

PATIENT
  Age: 70 Year
  Sex: Female

DRUGS (26)
  1. HUMIRA [Suspect]
     Indication: CROHN^S DISEASE
     Route: 058
     Dates: start: 20120820, end: 20120820
  2. HUMIRA [Suspect]
     Route: 058
     Dates: start: 20120903, end: 20120903
  3. HUMIRA [Suspect]
     Route: 058
  4. PREDNISONE [Suspect]
     Indication: PRODUCT USED FOR UNKNOWN INDICATION
  5. UNKNOWN ALLERGY MEDICATION [Concomitant]
     Indication: PRODUCT USED FOR UNKNOWN INDICATION
  6. ESTRADIOL [Concomitant]
     Indication: VAGINAL LACERATION
  7. ESTRADIOL [Concomitant]
     Indication: VAGINAL HAEMORRHAGE
  8. FUROSEMIDE [Concomitant]
     Indication: PRODUCT USED FOR UNKNOWN INDICATION
  9. BENAZEPRIL [Concomitant]
     Indication: BLOOD PRESSURE
  10. PRAVASTATIN [Concomitant]
     Indication: BLOOD CHOLESTEROL
  11. LORATADINE [Concomitant]
     Indication: BLOOD PRESSURE
  12. OMEPRAZOLE [Concomitant]
     Indication: HIATUS HERNIA
  13. FISH [Concomitant]
     Indication: PRODUCT USED FOR UNKNOWN INDICATION
  14. ATENOLOL [Concomitant]
     Indication: BLOOD PRESSURE
  15. ATENOLOL [Concomitant]
  16. POTASSIUM CHLORIDE [Concomitant]
     Indication: PRODUCT USED FOR UNKNOWN INDICATION
  17. AMLODIPINE [Concomitant]
     Indication: BLOOD PRESSURE
  18. CHOLESTYRAMINE [Concomitant]
     Indication: DIARRHOEA
  19. GLUCOSAMINE [Concomitant]
     Indication: ARTHRITIS
  20. ALPRAZOLAM [Concomitant]
     Indication: SLEEP DISORDER THERAPY
  21. LOMOTIL [Concomitant]
     Indication: PRODUCT USED FOR UNKNOWN INDICATION
  22. LAMICTAL [Concomitant]
     Indication: CONVULSION
  23. PROBIOTIC [Concomitant]
     Indication: PRODUCT USED FOR UNKNOWN INDICATION
  24. CLARITIN [Concomitant]
     Indication: HYPERSENSITIVITY
  25. ZYRTEC [Concomitant]
     Indication: HYPERSENSITIVITY
  26. CELEBREX [Concomitant]
     Indication: ARTHRITIS

REACTIONS (32)
  - Fatigue [Not Recovered/Not Resolved]
  - Asthenia [Not Recovered/Not Resolved]
  - Rhinorrhoea [Recovered/Resolved]
  - Hypoacusis [Not Recovered/Not Resolved]
  - Weight increased [Not Recovered/Not Resolved]
  - Headache [Recovered/Resolved]
  - Discomfort [Not Recovered/Not Resolved]
  - Feeling abnormal [Not Recovered/Not Resolved]
  - Back pain [Not Recovered/Not Resolved]
  - Abdominal pain [Not Recovered/Not Resolved]
  - Abnormal faeces [Not Recovered/Not Resolved]
  - Dizziness [Not Recovered/Not Resolved]
  - Feeling abnormal [Not Recovered/Not Resolved]
  - Frequent bowel movements [Not Recovered/Not Resolved]
  - Oedema [Recovering/Resolving]
  - Face oedema [Not Recovered/Not Resolved]
  - Pruritus [Recovering/Resolving]
  - Injection site erythema [Recovering/Resolving]
  - Ear pain [Not Recovered/Not Resolved]
  - Injection site pruritus [Recovering/Resolving]
  - Diarrhoea [Not Recovered/Not Resolved]
  - Injection site pain [Not Recovered/Not Resolved]
  - Pain [Unknown]
  - Musculoskeletal stiffness [Unknown]
  - Injection site pruritus [Unknown]
  - Pruritus [Unknown]
  - Piloerection [Unknown]
  - Injection site pain [Unknown]
  - Injection site pain [Unknown]
  - Local swelling [Unknown]
  - Diarrhoea [Unknown]
  - Wrong technique in drug usage process [Unknown]
